FAERS Safety Report 7990401-7 (Version None)
Quarter: 2011Q4

REPORT INFORMATION
  Report Type: 
  Country: None (occurrence: None)
  Receive Date: 20111219
  Receipt Date: 20101028
  Transmission Date: 20120403
  Serious: No
  Sender: FDA-Public Use
  Company Number: US-ASTRAZENECA-2010SE51327

PATIENT
  Age: 22932 Day
  Sex: Male

DRUGS (13)
  1. NIASPAN [Suspect]
     Indication: HYPERTRIGLYCERIDAEMIA
     Route: 048
     Dates: start: 20100915
  2. WARFARIN SODIUM [Concomitant]
  3. ACETAMINOPHEN [Concomitant]
  4. TAMSULOSIN HCL [Concomitant]
  5. CRESTOR [Suspect]
     Route: 048
     Dates: start: 20100915
  6. PAROXETINE HCL [Concomitant]
  7. MULTI-VITAMIN [Concomitant]
  8. BUPROPION HCL [Concomitant]
  9. LEVOTHYROXINE SODIUM [Suspect]
     Route: 048
     Dates: start: 20100915
  10. FISH OIL [Concomitant]
  11. NIASPAN [Suspect]
     Indication: HYPERCHOLESTEROLAEMIA
     Route: 048
     Dates: start: 20100915
  12. GLIMEPIRIDE [Concomitant]
  13. SITAGLIPTIN PHOSPHATE [Concomitant]

REACTIONS (3)
  - GAIT DISTURBANCE [None]
  - ARTHRALGIA [None]
  - ASTHENIA [None]
